FAERS Safety Report 12463637 (Version 3)
Quarter: 2016Q3

REPORT INFORMATION
  Report Type: Spontaneous
  Country: US (occurrence: US)
  Receive Date: 20160614
  Receipt Date: 20160816
  Transmission Date: 20161109
  Serious: No
  Sender: FDA-Public Use
  Company Number: US-PFIZER INC-2016271171

PATIENT
  Age: 57 Year
  Sex: Female

DRUGS (2)
  1. NEURONTIN [Suspect]
     Active Substance: GABAPENTIN
     Indication: NERVE BLOCK
     Dosage: 10 MG, 2X/DAY
     Dates: start: 2009
  2. NEURONTIN [Suspect]
     Active Substance: GABAPENTIN
     Indication: BURNING SENSATION

REACTIONS (2)
  - Erythema [Unknown]
  - Drug ineffective for unapproved indication [Unknown]
